FAERS Safety Report 14700987 (Version 1)
Quarter: 2018Q1

REPORT INFORMATION
  Report Type: Spontaneous
  Country: US (occurrence: US)
  Receive Date: 20180328
  Receipt Date: 20180328
  Transmission Date: 20180509
  Serious: No
  Sender: FDA-Public Use
  Company Number: None

PATIENT
  Age: 71 Year
  Sex: Female

DRUGS (7)
  1. URSODIOL. [Concomitant]
     Active Substance: URSODIOL
  2. YEVAFEM [Concomitant]
  3. OCALIVA [Suspect]
     Active Substance: OBETICHOLIC ACID
     Indication: PRIMARY BILIARY CHOLANGITIS
     Route: 048
     Dates: start: 20170828
  4. SONATA [Concomitant]
     Active Substance: ZALEPLON
  5. ESTRADIOL. [Concomitant]
     Active Substance: ESTRADIOL
  6. KLONOPIN [Concomitant]
     Active Substance: CLONAZEPAM
  7. SERTRALINE [Concomitant]
     Active Substance: SERTRALINE HYDROCHLORIDE

REACTIONS (2)
  - Blood alkaline phosphatase increased [None]
  - Pruritus [None]

NARRATIVE: CASE EVENT DATE: 201803
